FAERS Safety Report 4688808-9 (Version None)
Quarter: 2005Q2

REPORT INFORMATION
  Report Type: 
  Country: None (occurrence: None)
  Receive Date: 20050613
  Receipt Date: 20050531
  Transmission Date: 20051028
  Serious: Yes (Other)
  Sender: FDA-Public Use
  Company Number: CA-GLAXOSMITHKLINE-A0561481A

PATIENT
  Age: 42 Year
  Sex: Male

DRUGS (8)
  1. PAXIL [Suspect]
     Indication: DRUG USE FOR UNKNOWN INDICATION
     Dosage: 450MG UNKNOWN
     Route: 065
  2. ATIVAN [Suspect]
     Indication: DRUG USE FOR UNKNOWN INDICATION
     Dosage: 15MG UNKNOWN
     Route: 065
  3. ENDOCET [Suspect]
     Indication: DRUG USE FOR UNKNOWN INDICATION
     Dosage: 30U UNKNOWN
     Route: 065
  4. OXAZEPAM [Suspect]
     Indication: DRUG USE FOR UNKNOWN INDICATION
     Dosage: 450MG UNKNOWN
     Route: 065
  5. OXYCODONE HCL [Suspect]
     Indication: DRUG USE FOR UNKNOWN INDICATION
     Dosage: 15U UNKNOWN
     Route: 065
  6. COCAINE [Concomitant]
  7. OPIATE [Concomitant]
  8. ALCOHOL [Concomitant]
     Route: 065

REACTIONS (5)
  - BLOOD SODIUM DECREASED [None]
  - BODY TEMPERATURE DECREASED [None]
  - HAEMORRHAGE [None]
  - HYPOMAGNESAEMIA [None]
  - INTENTIONAL MISUSE [None]
